FAERS Safety Report 13695396 (Version 5)
Quarter: 2018Q1

REPORT INFORMATION
  Report Type: Spontaneous
  Country: US (occurrence: US)
  Receive Date: 20170627
  Receipt Date: 20180327
  Transmission Date: 20180508
  Serious: Yes (Hospitalization)
  Sender: FDA-Public Use
  Company Number: US-ACTELION-A-US2017-150822

PATIENT
  Age: 47 Year
  Sex: Female
  Weight: 112.2 kg

DRUGS (4)
  1. OPSUMIT [Suspect]
     Active Substance: MACITENTAN
     Indication: PULMONARY ARTERIAL HYPERTENSION
     Dosage: 10 MG, QD
     Route: 048
  2. UPTRAVI [Suspect]
     Active Substance: SELEXIPAG
     Indication: PULMONARY ARTERIAL HYPERTENSION
     Dosage: UNK
     Route: 048
     Dates: start: 20161212
  3. UPTRAVI [Suspect]
     Active Substance: SELEXIPAG
     Dosage: 1400 MCG, BID
     Route: 048
  4. SILDENAFIL CITRATE. [Concomitant]
     Active Substance: SILDENAFIL CITRATE

REACTIONS (10)
  - Headache [Unknown]
  - Cholelithiasis [Unknown]
  - Muscular weakness [Unknown]
  - Gallbladder disorder [Unknown]
  - Vomiting [Unknown]
  - Anaemia [Unknown]
  - Hypertension [Unknown]
  - Abdominal pain [Unknown]
  - Pain in jaw [Unknown]
  - Nausea [Unknown]

NARRATIVE: CASE EVENT DATE: 20170419
